FAERS Safety Report 19256647 (Version 1)
Quarter: 2021Q2

REPORT INFORMATION
  Report Type: Report from Study
  Country: None (occurrence: DE)
  Receive Date: 20210514
  Receipt Date: 20210514
  Transmission Date: 20210717
  Serious: Yes (Hospitalization, Disabling)
  Sender: FDA-Public Use
  Company Number: DE-ABBVIE-21K-062-3900540-00

PATIENT
  Age: 39 Year
  Sex: Female

DRUGS (1)
  1. HUMIRA [Suspect]
     Active Substance: ADALIMUMAB
     Indication: COLITIS ULCERATIVE
     Route: 058
     Dates: start: 201709, end: 202002

REACTIONS (9)
  - Bladder injury [Unknown]
  - Renal pain [Not Recovered/Not Resolved]
  - Ureteric injury [Unknown]
  - Post procedural complication [Recovered/Resolved]
  - Post procedural urine leak [Recovered/Resolved]
  - Sepsis [Recovered/Resolved]
  - Intestinal stenosis [Recovered/Resolved]
  - Procedural complication [Unknown]
  - Intestinal obstruction [Recovered/Resolved]

NARRATIVE: CASE EVENT DATE: 2020
